FAERS Safety Report 8208036-X (Version None)
Quarter: 2012Q1

REPORT INFORMATION
  Report Type: 
  Country: None (occurrence: None)
  Receive Date: 20120314
  Receipt Date: 20120307
  Transmission Date: 20120608
  Serious: Yes (Other)
  Sender: FDA-Public Use
  Company Number: CA-UCBSA-045641

PATIENT
  Age: 55 Year
  Sex: Female
  Weight: 58 kg

DRUGS (9)
  1. CIMZIA [Suspect]
     Route: 058
     Dates: start: 20101221, end: 20110222
  2. FLEXERIL [Concomitant]
  3. OMEPRAZOLE [Concomitant]
     Route: 048
     Dates: start: 20070901
  4. PLAQUENIL [Concomitant]
     Indication: RHEUMATOID ARTHRITIS
     Route: 048
     Dates: start: 20070901
  5. CIMZIA [Suspect]
     Indication: RHEUMATOID ARTHRITIS
     Route: 058
     Dates: start: 20110308
  6. NAPROSYN [Concomitant]
     Indication: RHEUMATOID ARTHRITIS
     Route: 048
     Dates: start: 20070901, end: 20111110
  7. METHOTREXATE [Concomitant]
     Indication: RHEUMATOID ARTHRITIS
     Dosage: 25 MG WEEKLY
     Route: 048
     Dates: start: 20070901
  8. FOLIC ACID [Concomitant]
     Indication: RHEUMATOID ARTHRITIS
     Dosage: 5 MG EACH DAY EXCEPT MONDAY
     Route: 048
     Dates: start: 20070901
  9. PRILOSEC [Concomitant]

REACTIONS (1)
  - RETINAL DETACHMENT [None]
